FAERS Safety Report 11131055 (Version 1)
Quarter: 2015Q2

REPORT INFORMATION
  Report Type: Spontaneous
  Country: US (occurrence: US)
  Receive Date: 20150522
  Receipt Date: 20150522
  Transmission Date: 20150821
  Serious: Yes (Death, Other)
  Sender: FDA-Public Use
  Company Number: US-CIPLA LTD.-2015US04032

PATIENT

DRUGS (2)
  1. GEMCITABINE [Suspect]
     Active Substance: GEMCITABINE\GEMCITABINE HYDROCHLORIDE
     Dosage: 72 MG/M2 FOR 2 CYCLES
     Route: 013
  2. GEMCITABINE [Suspect]
     Active Substance: GEMCITABINE\GEMCITABINE HYDROCHLORIDE
     Indication: ADENOCARCINOMA PANCREAS
     Dosage: 36 MG/M2 FOR 2 CYCLES
     Route: 013

REACTIONS (4)
  - Nausea [Unknown]
  - Adenocarcinoma pancreas [Fatal]
  - Fatigue [Unknown]
  - Disease progression [Unknown]
